FAERS Safety Report 13773073 (Version 5)
Quarter: 2019Q2

REPORT INFORMATION
  Report Type: Spontaneous
  Country: CA (occurrence: CA)
  Receive Date: 20170720
  Receipt Date: 20190506
  Transmission Date: 20190711
  Serious: Yes (Hospitalization, Other)
  Sender: FDA-Public Use
  Company Number: CA-PFIZER INC-2016366754

PATIENT
  Age: 49 Year
  Sex: Male
  Weight: 123 kg

DRUGS (16)
  1. SANDOSTATIN [Suspect]
     Active Substance: OCTREOTIDE ACETATE
     Indication: ACROMEGALY
     Dosage: 20 MG, EVERY 4 WEEKS (28 DAYS)
     Route: 030
     Dates: start: 200909
  2. SANDOSTATIN [Suspect]
     Active Substance: OCTREOTIDE ACETATE
     Dosage: 10 MG, EVERY 28 DAYS
     Route: 030
  3. EFFEXOR [Concomitant]
     Active Substance: VENLAFAXINE HYDROCHLORIDE
     Indication: DEPRESSION
     Dosage: 150 MG, DAILY
     Route: 048
     Dates: start: 201511
  4. SOMAVERT [Suspect]
     Active Substance: PEGVISOMANT
     Indication: ACROMEGALY
     Dosage: 10 MG, 1X/DAY
     Route: 058
     Dates: start: 20160601
  5. VITAMIN D2 [Concomitant]
     Active Substance: ERGOCALCIFEROL
     Indication: BONE DISORDER
     Dosage: 1000 IU, WEEKLY ON SUNDAY
  6. SOMAVERT [Suspect]
     Active Substance: PEGVISOMANT
     Indication: ADJUVANT THERAPY
     Dosage: 10 MG, 1X/DAY
     Route: 058
     Dates: end: 20170702
  7. EFFEXOR [Concomitant]
     Active Substance: VENLAFAXINE HYDROCHLORIDE
     Dosage: 225 MG, DAILY
     Route: 048
  8. SANDOSTATIN [Suspect]
     Active Substance: OCTREOTIDE ACETATE
     Dosage: 10 MG, MONTHLY (REDUCED DOSE)
     Route: 030
     Dates: start: 20160906
  9. VITAMIN D2 [Concomitant]
     Active Substance: ERGOCALCIFEROL
     Dosage: 1000 IU, DAILY
     Route: 048
  10. SOMAVERT [Suspect]
     Active Substance: PEGVISOMANT
     Indication: ACROMEGALY
     Dosage: REDUCED DOSE
     Route: 058
  11. SOMAVERT [Suspect]
     Active Substance: PEGVISOMANT
     Dosage: 10 MG, DAILY
     Route: 058
  12. SANDOSTATIN [Suspect]
     Active Substance: OCTREOTIDE ACETATE
     Dosage: 20 MG, EVERY 4 WEEKS (28 DAYS), NEXT DOSE ON 13JUL2017
     Route: 030
  13. COLACE [Concomitant]
     Active Substance: DOCUSATE SODIUM
     Indication: CONSTIPATION
     Dosage: 100 MG, DAILY (IN AM)
     Route: 048
     Dates: start: 200903
  14. ANDROGEL [Concomitant]
     Active Substance: TESTOSTERONE
     Indication: HYPOGONADISM
     Dosage: 5 G , 1X/DAY
     Route: 061
     Dates: start: 201308
  15. ZOPICLONE [Concomitant]
     Active Substance: ZOPICLONE
     Dosage: 7.5 MG, AS NEEDED
  16. SANDOSTATIN [Suspect]
     Active Substance: OCTREOTIDE ACETATE
     Indication: PITUITARY TUMOUR
     Dosage: 10MG
     Route: 030
     Dates: start: 200907

REACTIONS (16)
  - Hyperhidrosis [Unknown]
  - Myalgia [Recovering/Resolving]
  - Gallbladder disorder [Unknown]
  - Injection site bruising [Recovered/Resolved]
  - Faeces pale [Not Recovered/Not Resolved]
  - Musculoskeletal stiffness [Recovering/Resolving]
  - Arthralgia [Recovering/Resolving]
  - Injection site haematoma [Recovered/Resolved]
  - Back pain [Recovering/Resolving]
  - Cholelithiasis [Unknown]
  - Ligament sprain [Recovering/Resolving]
  - Injection site erythema [Recovered/Resolved]
  - Product dose omission [Unknown]
  - Calculus bladder [Recovered/Resolved]
  - Pain [Recovering/Resolving]
  - Constipation [Not Recovered/Not Resolved]

NARRATIVE: CASE EVENT DATE: 2009
